FAERS Safety Report 9793076 (Version 1)
Quarter: 2013Q4

REPORT INFORMATION
  Report Type: Spontaneous
  Country: US (occurrence: None)
  Receive Date: 20131231
  Receipt Date: 20131231
  Transmission Date: 20140711
  Serious: Yes (Other)
  Sender: FDA-Public Use
  Company Number: None

PATIENT
  Age: 65 Year
  Sex: Female
  Weight: 31.75 kg

DRUGS (1)
  1. FERAHEME [Suspect]
     Indication: AMYLOIDOSIS
     Dosage: 510MG DAY 1 AND 8  IV PUSH
     Route: 042
     Dates: start: 20131213

REACTIONS (4)
  - Hyperhidrosis [None]
  - Loss of consciousness [None]
  - Pulse absent [None]
  - Blood pressure immeasurable [None]
